FAERS Safety Report 9314332 (Version 1)
Quarter: 2013Q2

REPORT INFORMATION
  Report Type: Spontaneous
  Country: US (occurrence: None)
  Receive Date: 20130524
  Receipt Date: 20130524
  Transmission Date: 20140414
  Serious: Yes (Death)
  Sender: FDA-Public Use
  Company Number: None

PATIENT
  Age: 73 Year
  Sex: Female
  Weight: 60.7 kg

DRUGS (5)
  1. CARBOPLATIN [Suspect]
     Indication: CLEAR CELL RENAL CELL CARCINOMA
     Dates: start: 20130422, end: 20130426
  2. CARBOPLATIN [Suspect]
     Indication: METASTASES TO LUNG
     Dates: start: 20130422, end: 20130426
  3. CARBOPLATIN [Suspect]
     Indication: METASTASES TO LIVER
     Dates: start: 20130422, end: 20130426
  4. CARBOPLATIN [Suspect]
     Indication: METASTASES TO LYMPH NODES
     Dates: start: 20130422, end: 20130426
  5. TAXOL [Suspect]

REACTIONS (9)
  - Therapeutic response decreased [None]
  - Stomatitis [None]
  - Weight increased [None]
  - Myocardial infarction [None]
  - Atrial fibrillation [None]
  - Atrial flutter [None]
  - Acute respiratory distress syndrome [None]
  - Traumatic lung injury [None]
  - Fluid overload [None]
